FAERS Safety Report 17854722 (Version 2)
Quarter: 2020Q3

REPORT INFORMATION
  Report Type: Spontaneous
  Country: HK (occurrence: HK)
  Receive Date: 20200603
  Receipt Date: 20200709
  Transmission Date: 20201103
  Serious: Yes (Life-Threatening, Hospitalization)
  Sender: FDA-Public Use
  Company Number: HK-TEVA-2020-HK-1242165

PATIENT
  Age: 30 Year
  Sex: Female

DRUGS (1)
  1. TRAMADOL. [Suspect]
     Active Substance: TRAMADOL
     Indication: OVERDOSE
     Route: 065

REACTIONS (8)
  - Respiratory acidosis [Unknown]
  - Seizure [Unknown]
  - Respiratory failure [Unknown]
  - Toxicity to various agents [Unknown]
  - Loss of consciousness [Unknown]
  - Overdose [Unknown]
  - Miosis [Unknown]
  - Metabolic acidosis [Unknown]
